FAERS Safety Report 20818115 (Version 6)
Quarter: 2022Q3

REPORT INFORMATION
  Report Type: Spontaneous
  Country: PT (occurrence: PT)
  Receive Date: 20220512
  Receipt Date: 20220727
  Transmission Date: 20221027
  Serious: Yes (Life-Threatening, Hospitalization, Other)
  Sender: FDA-Public Use
  Company Number: None

PATIENT

DRUGS (11)
  1. IBUPROFEN [Suspect]
     Active Substance: IBUPROFEN
     Indication: Vomiting
     Dosage: UNK, HIGH DOSE
     Route: 048
  2. IBUPROFEN [Suspect]
     Active Substance: IBUPROFEN
     Indication: Pyrexia
  3. IBUPROFEN [Suspect]
     Active Substance: IBUPROFEN
     Indication: Abdominal pain upper
  4. PANTOPRAZOLE [Suspect]
     Active Substance: PANTOPRAZOLE
     Indication: Haematemesis
     Dosage: UNK
     Route: 065
  5. DESLORATADINE [Suspect]
     Active Substance: DESLORATADINE
     Indication: Vomiting
     Dosage: EXCEEDED THE RECOMMENDED DOSE
     Route: 048
  6. DESLORATADINE [Suspect]
     Active Substance: DESLORATADINE
     Indication: Pyrexia
  7. DESLORATADINE [Suspect]
     Active Substance: DESLORATADINE
     Indication: Abdominal pain upper
  8. ONDANSETRON [Suspect]
     Active Substance: ONDANSETRON
     Indication: Haematemesis
     Dosage: UNK
     Route: 065
  9. METAMIZOLE MAGNESIUM [Interacting]
     Active Substance: METAMIZOLE MAGNESIUM
     Indication: Abdominal pain upper
     Dosage: EXCEEDED THE RECOMMENDED DOSE
     Route: 048
  10. METAMIZOLE MAGNESIUM [Interacting]
     Active Substance: METAMIZOLE MAGNESIUM
     Indication: Pyrexia
  11. METAMIZOLE MAGNESIUM [Interacting]
     Active Substance: METAMIZOLE MAGNESIUM
     Indication: Vomiting

REACTIONS (17)
  - Intentional product misuse [Unknown]
  - Off label use [Unknown]
  - Overdose [Unknown]
  - Intentional product use issue [Unknown]
  - Haemorrhagic erosive gastritis [Unknown]
  - Gastrointestinal haemorrhage [Unknown]
  - Gastric disorder [Recovering/Resolving]
  - Self-medication [Unknown]
  - Gastric haemorrhage [Recovering/Resolving]
  - Gastrointestinal erosion [Recovered/Resolved]
  - Haematemesis [Recovered/Resolved]
  - Haemorrhage [Recovered/Resolved]
  - Gastritis haemorrhagic [Unknown]
  - Gastric ulcer [Recovering/Resolving]
  - Shock haemorrhagic [Unknown]
  - Gastritis erosive [Unknown]
  - Prescription drug used without a prescription [Unknown]
